FAERS Safety Report 12402552 (Version 1)
Quarter: 2016Q2

REPORT INFORMATION
  Report Type: Spontaneous
  Country: US (occurrence: US)
  Receive Date: 20160525
  Receipt Date: 20160525
  Transmission Date: 20160815
  Serious: Yes (Other)
  Sender: FDA-Public Use
  Company Number: US-PFIZER INC-2016036237

PATIENT
  Age: 67 Year
  Sex: Female

DRUGS (1)
  1. REVATIO [Suspect]
     Active Substance: SILDENAFIL CITRATE
     Indication: PULMONARY HYPERTENSION
     Dosage: 20 MG, 3 TIMES DAILY
     Dates: start: 2013

REACTIONS (2)
  - Respiratory failure [Recovered/Resolved]
  - Pneumonia [Recovered/Resolved]
